FAERS Safety Report 5152172-1 (Version None)
Quarter: 2006Q4

REPORT INFORMATION
  Report Type: 
  Country: None (occurrence: None)
  Receive Date: 20061116
  Receipt Date: 20061011
  Transmission Date: 20070319
  Serious: Yes (Other)
  Sender: FDA-Public Use
  Company Number: GB-GLAXOSMITHKLINE-B0441912A

PATIENT
  Age: 59 Year
  Sex: Male
  Weight: 134 kg

DRUGS (2)
  1. AVANDAMET [Suspect]
     Indication: DIABETES MELLITUS NON-INSULIN-DEPENDENT
     Route: 048
     Dates: start: 20060830, end: 20061009
  2. METFORMIN [Concomitant]
     Route: 065

REACTIONS (2)
  - ACANTHOSIS [None]
  - OEDEMA PERIPHERAL [None]
